FAERS Safety Report 8562740-2 (Version None)
Quarter: 2012Q3

REPORT INFORMATION
  Report Type: 
  Country: None (occurrence: None)
  Receive Date: 20120802
  Receipt Date: 20120716
  Transmission Date: 20120928
  Serious: No
  Sender: FDA-Public Use
  Company Number: US-AMGEN-USASP2012043908

PATIENT
  Age: 36 Year
  Sex: Male

DRUGS (1)
  1. ENBREL [Suspect]
     Indication: PSORIASIS
     Dosage: 50 MG, QWK
     Dates: start: 20080801, end: 20120513

REACTIONS (5)
  - INJECTION SITE PAIN [None]
  - MALAISE [None]
  - NASOPHARYNGITIS [None]
  - DYSPHEMIA [None]
  - DRUG EFFECT DECREASED [None]
